FAERS Safety Report 18615404 (Version 3)
Quarter: 2021Q1

REPORT INFORMATION
  Report Type: Other
  Country: CA (occurrence: CA)
  Receive Date: 20201214
  Receipt Date: 20210322
  Transmission Date: 20210419
  Serious: Yes (Hospitalization)
  Sender: FDA-Public Use
  Company Number: CA-CELLTRION INC.-2020CA033448

PATIENT

DRUGS (5)
  1. PERJETA [Suspect]
     Active Substance: PERTUZUMAB
     Indication: BREAST CANCER METASTATIC
     Route: 065
  2. PANTOLOC [PANTOPRAZOLE] [Concomitant]
     Active Substance: PANTOPRAZOLE SODIUM
     Dosage: UNK
  3. TRASTUZUMAB (UNKNOWN) [Suspect]
     Active Substance: TRASTUZUMAB
     Indication: BREAST CANCER METASTATIC
     Route: 065
  4. CEFADROXIL. [Concomitant]
     Active Substance: CEFADROXIL
     Indication: BREAST CANCER METASTATIC
     Dosage: UNK
  5. KADCYLA [Suspect]
     Active Substance: ADO-TRASTUZUMAB EMTANSINE
     Indication: BREAST CANCER METASTATIC
     Dosage: 220.0 MILLIGRAM 1 EVERY 3 WEEKS
     Route: 042

REACTIONS (5)
  - Hypertension [Not Recovered/Not Resolved]
  - Drug resistance [Not Recovered/Not Resolved]
  - Sepsis [Not Recovered/Not Resolved]
  - Tooth disorder [Not Recovered/Not Resolved]
  - Abdominal pain [Not Recovered/Not Resolved]
